FAERS Safety Report 5831841-1 (Version None)
Quarter: 2008Q3

REPORT INFORMATION
  Report Type: 
  Country: None (occurrence: None)
  Receive Date: 20080804
  Receipt Date: 20080722
  Transmission Date: 20090109
  Serious: Yes (Hospitalization)
  Sender: FDA-Public Use
  Company Number: JP-ELI_LILLY_AND_COMPANY-JP200712005272

PATIENT
  Sex: Female
  Weight: 48.8 kg

DRUGS (15)
  1. GEMCITABINE HCL [Suspect]
     Indication: BILE DUCT CANCER
     Dosage: 1200 MG, OTHER
     Route: 042
     Dates: start: 20070628, end: 20070920
  2. SEROTONE [Concomitant]
     Indication: PROPHYLAXIS
     Dosage: 10 MG, OTHER
     Route: 042
     Dates: start: 20070628, end: 20070628
  3. SEROTONE [Concomitant]
     Dosage: 10 MG, OTHER
     Route: 042
     Dates: start: 20070712, end: 20070712
  4. SEROTONE [Concomitant]
     Dosage: 10 MG, OTHER
     Route: 042
     Dates: start: 20070726, end: 20070726
  5. SEROTONE [Concomitant]
     Dosage: 10 MG, OTHER
     Route: 042
     Dates: start: 20070809, end: 20070809
  6. SEROTONE [Concomitant]
     Dosage: 10 MG, OTHER
     Route: 042
     Dates: start: 20070823, end: 20070823
  7. SEROTONE [Concomitant]
     Dosage: 10 MG, OTHER
     Route: 042
     Dates: start: 20070906, end: 20070906
  8. SEROTONE [Concomitant]
     Dosage: 10 MG, OTHER
     Route: 042
     Dates: start: 20070920, end: 20070920
  9. DECADRON [Concomitant]
     Indication: PROPHYLAXIS
     Dosage: 8 MG, OTHER
     Route: 042
     Dates: start: 20070628, end: 20070628
  10. DECADRON [Concomitant]
     Dosage: 8 MG, OTHER
     Route: 042
     Dates: start: 20070712, end: 20070712
  11. DECADRON [Concomitant]
     Dosage: 8 MG, OTHER
     Route: 042
     Dates: start: 20070726, end: 20070726
  12. DECADRON [Concomitant]
     Dosage: 8 MG, OTHER
     Route: 042
     Dates: start: 20070809, end: 20070809
  13. DECADRON [Concomitant]
     Dosage: 8 MG, OTHER
     Route: 042
     Dates: start: 20070823, end: 20070823
  14. DECADRON [Concomitant]
     Dosage: 8 MG, OTHER
     Route: 042
     Dates: start: 20070906, end: 20070906
  15. DECADRON [Concomitant]
     Dosage: 8 MG, OTHER
     Route: 042
     Dates: start: 20070920, end: 20070920

REACTIONS (2)
  - CHOLANGITIS [None]
  - PYREXIA [None]
